FAERS Safety Report 5454480-3 (Version None)
Quarter: 2007Q3

REPORT INFORMATION
  Report Type: 
  Country: None (occurrence: None)
  Receive Date: 20070917
  Receipt Date: 20070330
  Transmission Date: 20080115
  Serious: Yes (Other)
  Sender: FDA-Public Use
  Company Number: US-ASTRAZENECA-2006UW11584

PATIENT
  Age: 37 Year
  Sex: Female
  Weight: 74.5 kg

DRUGS (5)
  1. SEROQUEL [Suspect]
     Indication: BIPOLAR DISORDER
     Route: 048
  2. SEROQUEL [Suspect]
     Indication: BIPOLAR I DISORDER
     Route: 048
  3. SEROQUEL [Suspect]
     Indication: PERSONALITY DISORDER
     Route: 048
  4. ABILIFY [Concomitant]
  5. CLOZARIL [Concomitant]

REACTIONS (1)
  - PANCREATITIS [None]
